FAERS Safety Report 6757028-6 (Version None)
Quarter: 2010Q2

REPORT INFORMATION
  Report Type: 
  Country: None (occurrence: None)
  Receive Date: 20100604
  Receipt Date: 20100524
  Transmission Date: 20101027
  Serious: Yes (Hospitalization, Disabling)
  Sender: FDA-Public Use
  Company Number: US-ELI_LILLY_AND_COMPANY-US200911005918

PATIENT
  Sex: Female
  Weight: 97.052 kg

DRUGS (29)
  1. ZYPREXA [Suspect]
     Dosage: 5 MG, 2/D
     Dates: start: 19961101
  2. ZYPREXA [Suspect]
     Dosage: 10 MG, DAILY (1/D)
     Dates: start: 19961220, end: 19980626
  3. ZYPREXA [Suspect]
     Dosage: 30 MG, DAILY (1/D)
     Dates: start: 19971229
  4. ZYPREXA [Suspect]
     Dosage: 20 MG, EACH EVENING
     Dates: start: 19980211
  5. ZYPREXA [Suspect]
     Dosage: 10 MG, UNK
     Dates: start: 19980504
  6. ZYPREXA [Suspect]
     Dosage: 15 MG, UNK
     Dates: start: 19980626, end: 19980714
  7. ZYPREXA [Suspect]
     Dosage: 20 MG, UNK
     Dates: start: 19980714
  8. ZYPREXA [Suspect]
     Dosage: 30 MG, UNK
     Dates: start: 19980812
  9. ABILIFY [Concomitant]
     Dosage: UNK D/F, UNKNOWN
     Dates: start: 20080501
  10. GEODON [Concomitant]
     Dosage: UNK D/F, UNKNOWN
     Dates: start: 20060101, end: 20060501
  11. TRIFLUOPERAZINE [Concomitant]
     Dosage: UNK D/F, UNKNOWN
     Dates: start: 19930101, end: 19960101
  12. BUPROPION HCL [Concomitant]
     Dosage: UNK D/F, UNKNOWN
     Dates: start: 19970201, end: 20020701
  13. EFFEXOR [Concomitant]
     Dosage: UNK D/F, UNKNOWN
     Dates: start: 20020101
  14. LABETALOL HCL [Concomitant]
     Dosage: UNK D/F, UNKNOWN
     Dates: start: 20040101
  15. THIOTHIXENE [Concomitant]
     Dosage: 10 MG, UNK
  16. LEXAPRO [Concomitant]
     Dosage: 10 MG, UNK
  17. CLONAZEPAM [Concomitant]
     Dosage: 1 MG, UNK
  18. VYTORIN [Concomitant]
     Dosage: 1 D/F, UNK
  19. LOVASTATIN [Concomitant]
  20. LIPITOR [Concomitant]
     Dosage: 10 MG, UNK
  21. WELLBUTRIN [Concomitant]
     Dosage: 150 MG, UNK
  22. DEPAKOTE [Concomitant]
     Dosage: 500 MG, UNK
  23. VIOXX [Concomitant]
     Dosage: 25 MG, UNK
  24. SIMVASTATIN [Concomitant]
     Dosage: 40 MG, UNK
  25. HYDROCHLOROTHIAZIDE [Concomitant]
     Dosage: 25 MG, UNK
  26. SYNTHROID [Concomitant]
     Dosage: 88 UG, UNK
  27. FUROSEMIDE [Concomitant]
     Dosage: 40 MG, UNK
  28. TRILEPTAL [Concomitant]
     Dosage: 600 MG, UNK
  29. ARICEPT [Concomitant]
     Dosage: 5 MG, EACH MORNING

REACTIONS (10)
  - CARDIAC DISORDER [None]
  - DIABETES MELLITUS [None]
  - HEPATIC STEATOSIS [None]
  - HEPATOMEGALY [None]
  - HYPERTENSION [None]
  - INCREASED APPETITE [None]
  - OVERDOSE [None]
  - PANCREATITIS [None]
  - SEDATION [None]
  - WEIGHT INCREASED [None]
